FAERS Safety Report 22160365 (Version 7)
Quarter: 2023Q4

REPORT INFORMATION
  Report Type: Report from Study
  Country: CA (occurrence: CA)
  Receive Date: 20230331
  Receipt Date: 20231221
  Transmission Date: 20240109
  Serious: Yes (Hospitalization, Other)
  Sender: FDA-Public Use
  Company Number: CA-002147023-NVSC2021CA081718

PATIENT
  Age: 69 Year
  Sex: Female

DRUGS (3)
  1. SANDOSTATIN LAR DEPOT [Suspect]
     Active Substance: OCTREOTIDE ACETATE
     Indication: Carcinoid tumour
     Dosage: 30 MG, Q4W (VIAL)
     Route: 030
     Dates: start: 20151201
  2. SANDOSTATIN LAR DEPOT [Suspect]
     Active Substance: OCTREOTIDE ACETATE
  3. SANDOSTATIN LAR DEPOT [Suspect]
     Active Substance: OCTREOTIDE ACETATE

REACTIONS (12)
  - Oesophageal rupture [Unknown]
  - Haematemesis [Unknown]
  - Hepatic steatosis [Unknown]
  - Gait inability [Unknown]
  - Paralysis [Unknown]
  - Thrombosis [Unknown]
  - Pain in extremity [Recovering/Resolving]
  - Blood pressure systolic increased [Unknown]
  - Nasopharyngitis [Unknown]
  - Limb discomfort [Unknown]
  - Injection site haemorrhage [Recovered/Resolved]
  - Decubitus ulcer [Unknown]

NARRATIVE: CASE EVENT DATE: 20210328
